FAERS Safety Report 4388208-5 (Version None)
Quarter: 2004Q2

REPORT INFORMATION
  Report Type: 
  Country: None (occurrence: None)
  Receive Date: 20040629
  Receipt Date: 20040629
  Transmission Date: 20050107
  Serious: Yes (Life-Threatening, Hospitalization, Disabling)
  Sender: FDA-Public Use
  Company Number: None

PATIENT
  Age: 60 Year
  Sex: Male
  Weight: 101.6057 kg

DRUGS (2)
  1. HEPARIN [Suspect]
     Indication: DEEP VEIN THROMBOSIS
     Dosage: 1200 UNITS/HR
     Dates: end: 20040624
  2. HEPARIN [Suspect]
     Indication: PULMONARY EMBOLISM
     Dosage: 1200 UNITS/HR
     Dates: end: 20040624

REACTIONS (2)
  - ACTIVATED PARTIAL THROMBOPLASTIN TIME PROLONGED [None]
  - HEPARIN-INDUCED THROMBOCYTOPENIA [None]
